FAERS Safety Report 20802832 (Version 2)
Quarter: 2022Q4

REPORT INFORMATION
  Report Type: Spontaneous
  Country: US (occurrence: US)
  Receive Date: 20220509
  Receipt Date: 20221011
  Transmission Date: 20230112
  Serious: No
  Sender: FDA-Public Use
  Company Number: US-Merck Healthcare KGaA-9313155

PATIENT
  Age: 75 Year
  Sex: Male

DRUGS (1)
  1. BAVENCIO [Suspect]
     Active Substance: AVELUMAB
     Indication: Neuroendocrine carcinoma of the skin
     Route: 042
     Dates: start: 20200210, end: 20201228

REACTIONS (4)
  - Dental discomfort [Unknown]
  - Pain [Unknown]
  - Hyperaesthesia teeth [Unknown]
  - Gingival pain [Unknown]

NARRATIVE: CASE EVENT DATE: 20200601
